FAERS Safety Report 12276781 (Version 5)
Quarter: 2016Q4

REPORT INFORMATION
  Report Type: Spontaneous
  Country: US (occurrence: US)
  Receive Date: 20160418
  Receipt Date: 20161123
  Transmission Date: 20170207
  Serious: Yes (Hospitalization)
  Sender: FDA-Public Use
  Company Number: US-PFIZER INC-2016211536

PATIENT
  Sex: Female

DRUGS (2)
  1. LIPITOR [Concomitant]
     Active Substance: ATORVASTATIN CALCIUM
     Indication: BLOOD CHOLESTEROL
     Dosage: UNK
  2. XELJANZ [Suspect]
     Active Substance: TOFACITINIB CITRATE
     Indication: RHEUMATOID ARTHRITIS
     Dosage: 5 MG, 2X/DAY
     Dates: start: 20160326

REACTIONS (12)
  - Tibia fracture [Unknown]
  - Oropharyngeal pain [Not Recovered/Not Resolved]
  - Muscular weakness [Unknown]
  - White blood cell count increased [Unknown]
  - Rhinorrhoea [Not Recovered/Not Resolved]
  - Eye irritation [Unknown]
  - Diarrhoea [Unknown]
  - Eye pruritus [Unknown]
  - Headache [Not Recovered/Not Resolved]
  - Abdominal discomfort [Unknown]
  - Pain in extremity [Not Recovered/Not Resolved]
  - Peripheral swelling [Not Recovered/Not Resolved]

NARRATIVE: CASE EVENT DATE: 20160326
